FAERS Safety Report 6921938-7 (Version None)
Quarter: 2010Q3

REPORT INFORMATION
  Report Type: 
  Country: None (occurrence: None)
  Receive Date: 20100812
  Receipt Date: 20100805
  Transmission Date: 20110219
  Serious: Yes (Other)
  Sender: FDA-Public Use
  Company Number: CA-ABBOTT-10P-028-0648587-00

PATIENT
  Sex: Female

DRUGS (3)
  1. HUMIRA [Suspect]
     Indication: CROHN'S DISEASE
     Dosage: INDUCTION DEC 2009 THE STOPPED, RESTARTED IN MAY 2010 UNTIL PRESENT
     Route: 058
     Dates: start: 20091207
  2. HUMIRA [Suspect]
     Dates: start: 20100501
  3. IMURAN [Suspect]
     Indication: PRODUCT USED FOR UNKNOWN INDICATION

REACTIONS (5)
  - HEADACHE [None]
  - LARGE INTESTINE PERFORATION [None]
  - NAUSEA [None]
  - PANCREATITIS [None]
  - PARAESTHESIA [None]
